FAERS Safety Report 6828630-8 (Version None)
Quarter: 2010Q3

REPORT INFORMATION
  Report Type: 
  Country: None (occurrence: None)
  Receive Date: 20100709
  Receipt Date: 20070216
  Transmission Date: 20110219
  Serious: No
  Sender: FDA-Public Use
  Company Number: US-PFIZER INC-2007013514

PATIENT
  Sex: Male
  Weight: 58.97 kg

DRUGS (4)
  1. CHANTIX [Suspect]
     Indication: SMOKING CESSATION THERAPY
     Dates: start: 20070201
  2. DIOVAN HCT [Concomitant]
     Indication: HYPERTENSION
  3. CIALIS [Concomitant]
     Indication: ERECTILE DYSFUNCTION
  4. ADVAIR DISKUS 100/50 [Concomitant]
     Indication: BRONCHITIS

REACTIONS (3)
  - AGITATION [None]
  - NAUSEA [None]
  - VOMITING [None]
